FAERS Safety Report 17686481 (Version 2)
Quarter: 2021Q2

REPORT INFORMATION
  Report Type: Spontaneous
  Country: US (occurrence: US)
  Receive Date: 20200420
  Receipt Date: 20210415
  Transmission Date: 20210716
  Serious: Yes (Hospitalization, Other)
  Sender: FDA-Public Use
  Company Number: US-ASTRAZENECA-2020SE51281

PATIENT
  Age: 20763 Day
  Sex: Female
  Weight: 120.7 kg

DRUGS (47)
  1. ISOSORBIDE MONONITRATE. [Concomitant]
     Active Substance: ISOSORBIDE MONONITRATE
  2. COREG [Concomitant]
     Active Substance: CARVEDILOL
  3. OXYCODONE/ACETAMINOPHEN [Concomitant]
     Active Substance: ACETAMINOPHEN\OXYCODONE HYDROCHLORIDE
  4. METHYLPREDNISOLONE. [Concomitant]
     Active Substance: METHYLPREDNISOLONE
  5. AMOX TR?K CLAV [Concomitant]
  6. NORVASC [Concomitant]
     Active Substance: AMLODIPINE BESYLATE
  7. AVANDAMET [Concomitant]
     Active Substance: METFORMIN HYDROCHLORIDE\ROSIGLITAZONE MALEATE
  8. METRONIDAZOLE. [Concomitant]
     Active Substance: METRONIDAZOLE
  9. CYCLOBENZAPRINE. [Concomitant]
     Active Substance: CYCLOBENZAPRINE
  10. LEVOFLOXACIN. [Concomitant]
     Active Substance: LEVOFLOXACIN
  11. ACETAMINOPHEN. [Concomitant]
     Active Substance: ACETAMINOPHEN
  12. PRILOSEC [Suspect]
     Active Substance: OMEPRAZOLE MAGNESIUM
     Route: 048
     Dates: start: 201101, end: 201612
  13. PREVACID [Suspect]
     Active Substance: LANSOPRAZOLE
     Route: 065
     Dates: start: 201101, end: 201612
  14. LISINOPRIL HCTZ [Concomitant]
     Active Substance: HYDROCHLOROTHIAZIDE\LISINOPRIL
  15. LANTUS [Concomitant]
     Active Substance: INSULIN GLARGINE
  16. DILTIAZEM. [Concomitant]
     Active Substance: DILTIAZEM
  17. KLOR?CON [Concomitant]
     Active Substance: POTASSIUM CHLORIDE
  18. LIPITOR [Concomitant]
     Active Substance: ATORVASTATIN CALCIUM
  19. HYDROCHLOROTHIAZIDE. [Concomitant]
     Active Substance: HYDROCHLOROTHIAZIDE
  20. CARTIA XT [Concomitant]
     Active Substance: DILTIAZEM HYDROCHLORIDE
  21. ATORVASTATIN [Concomitant]
     Active Substance: ATORVASTATIN
  22. HYDRALAZINE [Concomitant]
     Active Substance: HYDRALAZINE HYDROCHLORIDE
  23. FUROSEMIDE. [Concomitant]
     Active Substance: FUROSEMIDE
  24. FERROUS SULFATE. [Concomitant]
     Active Substance: FERROUS SULFATE
  25. NITROQUICK [Concomitant]
     Active Substance: NITROGLYCERIN
  26. LABETALOL [Concomitant]
     Active Substance: LABETALOL\LABETALOL HYDROCHLORIDE
  27. LEVEMIR [Concomitant]
     Active Substance: INSULIN DETEMIR
  28. NIFEDIPINE. [Concomitant]
     Active Substance: NIFEDIPINE
  29. GLIPIZIDE. [Concomitant]
     Active Substance: GLIPIZIDE
  30. HYDROCODONE BITARTRATE AND ACETAMINOPHEN [Concomitant]
     Active Substance: ACETAMINOPHEN\HYDROCODONE BITARTRATE
  31. CARISOPRODOL. [Concomitant]
     Active Substance: CARISOPRODOL
  32. GLYBURIDE/METFORMIN [Concomitant]
     Active Substance: GLYBURIDE\METFORMIN
  33. MICARDIS [Concomitant]
     Active Substance: TELMISARTAN
  34. CLONIDINE. [Concomitant]
     Active Substance: CLONIDINE
  35. NEXIUM 24HR [Suspect]
     Active Substance: ESOMEPRAZOLE MAGNESIUM
     Route: 048
     Dates: start: 201101, end: 201612
  36. TOPROL XL [Concomitant]
     Active Substance: METOPROLOL SUCCINATE
  37. NAPROXEN. [Concomitant]
     Active Substance: NAPROXEN
  38. BACLOFEN. [Concomitant]
     Active Substance: BACLOFEN
  39. CIPROFLOXACIN. [Concomitant]
     Active Substance: CIPROFLOXACIN
  40. TAZTIA XT [Concomitant]
     Active Substance: DILTIAZEM HYDROCHLORIDE
  41. ASPIRIN. [Concomitant]
     Active Substance: ASPIRIN
  42. METFORMIN [Concomitant]
     Active Substance: METFORMIN HYDROCHLORIDE
  43. EFFEXOR [Concomitant]
     Active Substance: VENLAFAXINE HYDROCHLORIDE
  44. GABAPENTIN. [Concomitant]
     Active Substance: GABAPENTIN
  45. SIMVASTATIN. [Concomitant]
     Active Substance: SIMVASTATIN
  46. ALBUTEROL. [Concomitant]
     Active Substance: ALBUTEROL
  47. PROPOXY N/APAP [Concomitant]
     Active Substance: ACETAMINOPHEN\PROPOXYPHENE NAPSYLATE

REACTIONS (4)
  - Renal tubular necrosis [Unknown]
  - Chronic kidney disease [Unknown]
  - Renal hypertension [Unknown]
  - Acute kidney injury [Unknown]

NARRATIVE: CASE EVENT DATE: 20151003
